FAERS Safety Report 8522103-2 (Version None)
Quarter: 2012Q3

REPORT INFORMATION
  Report Type: 
  Country: None (occurrence: None)
  Receive Date: 20120709
  Receipt Date: 20120628
  Transmission Date: 20120928
  Serious: Yes (Hospitalization)
  Sender: FDA-Public Use
  Company Number: 2012-002061

PATIENT
  Age: 74 Year
  Sex: Female
  Weight: 61 kg

DRUGS (3)
  1. RISEDRONATE SODIUM [Suspect]
     Indication: OSTEOPOROSIS
     Dosage: 2.5 MG ONCE DAILY, ORAL
     Route: 048
     Dates: start: 20080515, end: 20120111
  2. FARESTON [Concomitant]
  3. FEMARA [Concomitant]

REACTIONS (13)
  - OESOPHAGEAL STENOSIS [None]
  - DECREASED APPETITE [None]
  - COUGH [None]
  - CARDIOMEGALY [None]
  - PNEUMONIA [None]
  - FATIGUE [None]
  - OESOPHAGITIS [None]
  - HAEMOGLOBIN DECREASED [None]
  - DEHYDRATION [None]
  - PLATELET COUNT INCREASED [None]
  - DYSPHAGIA [None]
  - GASTROOESOPHAGEAL REFLUX DISEASE [None]
  - WHITE BLOOD CELL COUNT INCREASED [None]
